FAERS Safety Report 8159587 (Version 3)
Quarter: 2012Q4

REPORT INFORMATION
  Report Type: 
  Country: CA (occurrence: CA)
  Receive Date: 20110928
  Receipt Date: 20121123
  Transmission Date: 20130627
  Serious: Yes (Disabling, Other)
  Sender: FDA-Public Use
  Company Number: PHHY2011CA85308

PATIENT
  Age: 57 Year
  Sex: Female

DRUGS (21)
  1. ACLASTA [Suspect]
     Indication: OSTEOPOROSIS
     Dosage: UNK UKN, UNK
     Route: 042
     Dates: start: 20091217
  2. ACLASTA [Suspect]
     Dosage: UNK UKN, UNK
     Route: 042
     Dates: start: 20101216
  3. ACLASTA [Suspect]
     Dosage: UNK UKN, UNK
     Route: 042
     Dates: start: 20111215
  4. ATACAND [Concomitant]
     Dosage: 16 mg, QD
  5. PREVACID [Concomitant]
     Dosage: 30 mg, QD
  6. ACEBUTOLOL [Concomitant]
     Dosage: 200 mg, BID
  7. NITRAZEPAM [Concomitant]
     Dosage: 10 mg, UNK
  8. ASACOL [Concomitant]
     Dosage: 800 mg, TID
  9. ENTOCORT [Concomitant]
     Dosage: 6 mg, UNK
  10. CORTIFOAM [Concomitant]
     Dosage: UNK UKN, UNK (PRN)
  11. DICETEL [Concomitant]
     Dosage: 50 mg, TID
  12. PREDNISONE [Concomitant]
     Dosage: 10 mg, QD
  13. WELLBUTRIN                         /00700502/ [Concomitant]
     Dosage: 150 mg, BID
  14. SLOW-K [Concomitant]
     Dosage: 600 mg, TID
  15. SYNTHROID [Concomitant]
     Dosage: 150 ug, QD
  16. AMLODIPINE [Concomitant]
     Dosage: 5 mg, QD
  17. PROCTOL [Concomitant]
     Dosage: UNK UKN, UNK (PRN)
  18. APO-GABAPENTIN [Concomitant]
     Dosage: 200 mg, UNK
  19. FERROUS GLUCONATE [Concomitant]
     Dosage: 300 mg, QD
  20. TIMOLOL [Concomitant]
     Dosage: 1 UKN (drop), QD
  21. FUROSEMIDE [Concomitant]
     Dosage: 40 mg, QD

REACTIONS (5)
  - Fall [Not Recovered/Not Resolved]
  - Foot fracture [Not Recovered/Not Resolved]
  - Ligament sprain [Not Recovered/Not Resolved]
  - Fibula fracture [Not Recovered/Not Resolved]
  - Neuropathic arthropathy [Not Recovered/Not Resolved]
